FAERS Safety Report 13983819 (Version 1)
Quarter: 2017Q3

REPORT INFORMATION
  Report Type: Spontaneous
  Country: US (occurrence: US)
  Receive Date: 20170918
  Receipt Date: 20170918
  Transmission Date: 20171128
  Serious: Yes (Hospitalization)
  Sender: FDA-Public Use
  Company Number: US-BEH-2017083580

PATIENT
  Age: 65 Year
  Sex: Male
  Weight: 81.63 kg

DRUGS (20)
  1. TRADJENTA [Concomitant]
     Active Substance: LINAGLIPTIN
  2. LISINOPRIL. [Concomitant]
     Active Substance: LISINOPRIL
  3. ASPIRIN. [Concomitant]
     Active Substance: ASPIRIN
  4. CLONIDINE. [Concomitant]
     Active Substance: CLONIDINE
  5. DICLOFENAC [Concomitant]
     Active Substance: DICLOFENAC
  6. CARVEDILOL. [Concomitant]
     Active Substance: CARVEDILOL
  7. CLOPIDOGREL [Concomitant]
     Active Substance: CLOPIDOGREL BISULFATE
  8. HIZENTRA [Suspect]
     Active Substance: HUMAN IMMUNOGLOBULIN G
     Indication: IMMUNODEFICIENCY COMMON VARIABLE
     Dosage: 10 G, QW
     Route: 058
     Dates: start: 20151109
  9. ALPRAZOLAM. [Concomitant]
     Active Substance: ALPRAZOLAM
  10. CRESTOR [Concomitant]
     Active Substance: ROSUVASTATIN CALCIUM
  11. PAROXETINE. [Concomitant]
     Active Substance: PAROXETINE
  12. METFORMIN [Concomitant]
     Active Substance: METFORMIN HYDROCHLORIDE
  13. FIBER LAX [Concomitant]
     Active Substance: CALCIUM POLYCARBOPHIL
  14. VICODIN [Concomitant]
     Active Substance: ACETAMINOPHEN\HYDROCODONE BITARTRATE
  15. INDAPAMIDE. [Concomitant]
     Active Substance: INDAPAMIDE
  16. BUPROPION. [Concomitant]
     Active Substance: BUPROPION
  17. MULTIVITAMIN                       /00097801/ [Concomitant]
     Active Substance: VITAMINS
  18. HIZENTRA [Suspect]
     Active Substance: HUMAN IMMUNOGLOBULIN G
     Dosage: UNK
     Route: 058
  19. FISH OIL [Concomitant]
     Active Substance: FISH OIL
  20. LOSARTAN. [Concomitant]
     Active Substance: LOSARTAN

REACTIONS (1)
  - Intensive care [Unknown]
